FAERS Safety Report 6986597-6 (Version None)
Quarter: 2010Q3

REPORT INFORMATION
  Report Type: 
  Country: None (occurrence: None)
  Receive Date: 20100827
  Receipt Date: 20100525
  Transmission Date: 20110219
  Serious: Yes (Hospitalization, Other)
  Sender: FDA-Public Use
  Company Number: AMAG201000249

PATIENT
  Age: 54 Year
  Sex: Male
  Weight: 66.7 kg

DRUGS (13)
  1. FERAHEME [Suspect]
     Indication: IRON DEFICIENCY ANAEMIA
     Dosage: 4 ML (120 MG), SINGLE, INTRAVENOUS
     Route: 042
     Dates: start: 20100525, end: 20100525
  2. FERAHEME [Suspect]
     Indication: RENAL FAILURE CHRONIC
     Dosage: 4 ML (120 MG), SINGLE, INTRAVENOUS
     Route: 042
     Dates: start: 20100525, end: 20100525
  3. ARANESP [Concomitant]
  4. ALDACTONE (POTASSIUM CANRENOATE) [Concomitant]
  5. CELLCEPT (MYCOPHENILATE MOFETIL) [Concomitant]
  6. LACTULOSE [Concomitant]
  7. LANTUS OPTIPEN (INSULIN GLARGINE) [Concomitant]
  8. MAGNESIUM OXIDE (MAGNESIUM OXIDE) [Concomitant]
  9. METOLAZONE [Concomitant]
  10. NOVOLOG [Concomitant]
  11. PROTONIX (PANTORPAZOLE SODIUM) [Concomitant]
  12. RIFAXIMIN(RIFAXIMIN) [Concomitant]
  13. SOLU-MEDROL [Concomitant]

REACTIONS (8)
  - BLOOD PRESSURE INCREASED [None]
  - DYSPNOEA [None]
  - FLUSHING [None]
  - HYPERHIDROSIS [None]
  - MALAISE [None]
  - NAUSEA [None]
  - VOMITING [None]
  - WHEEZING [None]
